FAERS Safety Report 5308662-1 (Version None)
Quarter: 2007Q2

REPORT INFORMATION
  Report Type: 
  Country: None (occurrence: None)
  Receive Date: 20070426
  Receipt Date: 20070419
  Transmission Date: 20071010
  Serious: Yes (Other)
  Sender: FDA-Public Use
  Company Number: JP-AVENTIS-200711044JP

PATIENT

DRUGS (2)
  1. LASIX [Suspect]
     Route: 048
  2. LASIX [Suspect]
     Route: 042

REACTIONS (1)
  - PNEUMONIA [None]
